FAERS Safety Report 6408979-3 (Version None)
Quarter: 2009Q4

REPORT INFORMATION
  Report Type: 
  Country: None (occurrence: None)
  Receive Date: 20091019
  Receipt Date: 20091019
  Transmission Date: 20100525
  Serious: Yes (Other)
  Sender: FDA-Public Use
  Company Number: None

PATIENT
  Age: 39 Year
  Sex: Male
  Weight: 79.3795 kg

DRUGS (2)
  1. COMPAZINE [Suspect]
     Indication: HEADACHE
     Dosage: 10MG INJECTED IV ONCE IV BOLUS
     Route: 040
     Dates: start: 20091013, end: 20091013
  2. COMPAZINE [Suspect]
     Indication: VERTIGO
     Dosage: 10MG INJECTED IV ONCE IV BOLUS
     Route: 040
     Dates: start: 20091013, end: 20091013

REACTIONS (9)
  - AGITATION [None]
  - DIARRHOEA [None]
  - DIZZINESS [None]
  - DRUG TOXICITY [None]
  - DYSKINESIA [None]
  - DYSTONIA [None]
  - INSOMNIA [None]
  - NAUSEA [None]
  - TREMOR [None]
